FAERS Safety Report 20584212 (Version 2)
Quarter: 2022Q2

REPORT INFORMATION
  Report Type: Spontaneous
  Country: None (occurrence: US)
  Receive Date: 20220311
  Receipt Date: 20220413
  Transmission Date: 20220721
  Serious: Yes (Other)
  Sender: FDA-Public Use
  Company Number: US-Imprimis NJOF-2126684

PATIENT
  Sex: Male

DRUGS (1)
  1. MOXIFLOXACIN\TRIAMCINOLONE [Suspect]
     Active Substance: MOXIFLOXACIN\TRIAMCINOLONE

REACTIONS (1)
  - Haemorrhagic occlusive retinal vasculitis [Unknown]
